FAERS Safety Report 18042876 (Version 1)
Quarter: 2020Q3

REPORT INFORMATION
  Report Type: Spontaneous
  Country: US (occurrence: US)
  Receive Date: 20200717
  Receipt Date: 20200717
  Transmission Date: 20201103
  Serious: Yes (Death)
  Sender: FDA-Public Use
  Company Number: None

PATIENT
  Age: 72 Year
  Sex: Male
  Weight: 83 kg

DRUGS (2)
  1. ACTEMRA [Concomitant]
     Active Substance: TOCILIZUMAB
     Dates: start: 20200703, end: 20200703
  2. REMDESIVIR. [Suspect]
     Active Substance: REMDESIVIR
     Dates: start: 20200630, end: 20200704

REACTIONS (2)
  - Blood creatinine increased [None]
  - Enterobacter pneumonia [None]

NARRATIVE: CASE EVENT DATE: 20200711
